FAERS Safety Report 8090798-6 (Version None)
Quarter: 2012Q1

REPORT INFORMATION
  Report Type: 
  Country: None (occurrence: None)
  Receive Date: 20120131
  Receipt Date: 20120123
  Transmission Date: 20120608
  Serious: Yes (Life-Threatening, Hospitalization, Other)
  Sender: FDA-Public Use
  Company Number: US-BAYER-201023969NA

PATIENT
  Age: 27 Year
  Sex: Female
  Weight: 58 kg

DRUGS (9)
  1. VALIUM [Concomitant]
     Route: 048
  2. METHYLPREDNISOLONE [Concomitant]
     Dosage: UNK
     Dates: start: 20061201
  3. ONDANSETRON HCL [Concomitant]
     Dosage: 4 MG, UNK
     Dates: start: 20061221
  4. VICODIN [Concomitant]
     Route: 048
  5. TORADOL [Concomitant]
     Dosage: 30 MG, UNK
     Route: 042
     Dates: start: 20061221
  6. VALTREX [Concomitant]
     Dosage: 1 G, UNK
     Route: 048
  7. PROMETHAZINE W/ CODEINE [Concomitant]
     Dosage: UNK
     Route: 048
     Dates: start: 20061201
  8. YAZ [Suspect]
     Indication: CONTRACEPTION
     Dosage: UNK UNK, UNK
     Route: 048
     Dates: start: 20060701, end: 20061201
  9. BIAXIN XL [Concomitant]
     Dosage: 500 MG, UNK
     Route: 048
     Dates: start: 20061201

REACTIONS (3)
  - LUNG INFILTRATION [None]
  - THROMBOSIS [None]
  - PULMONARY EMBOLISM [None]
